FAERS Safety Report 4624403-5 (Version None)
Quarter: 2005Q1

REPORT INFORMATION
  Report Type: 
  Country: None (occurrence: None)
  Receive Date: 20050107
  Receipt Date: 20040927
  Transmission Date: 20050727
  Serious: No
  Sender: FDA-Public Use
  Company Number: 234869K04USA

PATIENT
  Age: 28 Year
  Sex: Male

DRUGS (2)
  1. REBIF [Suspect]
     Indication: MULTIPLE SCLEROSIS
     Dosage: 44 MCG, 3 IN 1 WEEKS
     Dates: start: 20030519
  2. SOLU-MEDROL [Concomitant]

REACTIONS (7)
  - CHEST PAIN [None]
  - DUODENAL ULCER [None]
  - ERUCTATION [None]
  - FLUSHING [None]
  - HEADACHE [None]
  - HICCUPS [None]
  - OESOPHAGEAL ULCER [None]
